FAERS Safety Report 19349421 (Version 1)
Quarter: 2021Q2

REPORT INFORMATION
  Report Type: Spontaneous
  Country: US (occurrence: US)
  Receive Date: 20210531
  Receipt Date: 20210531
  Transmission Date: 20210717
  Serious: No
  Sender: FDA-Public Use
  Company Number: None

PATIENT
  Age: 45 Year
  Sex: Male
  Weight: .23 kg

DRUGS (1)
  1. SODIUM SULFACETAMIDE 9.8% AND SULFUR 4.8% [Suspect]
     Active Substance: SULFACETAMIDE SODIUM\SULFUR
     Indication: SKIN DISORDER
     Dosage: ?          QUANTITY:1 OUNCE(S);?
     Route: 061

REACTIONS (1)
  - Product storage error [None]

NARRATIVE: CASE EVENT DATE: 20210524
